FAERS Safety Report 5926628-5 (Version None)
Quarter: 2008Q4

REPORT INFORMATION
  Report Type: 
  Country: None (occurrence: None)
  Receive Date: 20081022
  Receipt Date: 20081013
  Transmission Date: 20090506
  Serious: Yes (Other)
  Sender: FDA-Public Use
  Company Number: B0541290A

PATIENT
  Age: 56 Year
  Sex: Female

DRUGS (3)
  1. ZELITREX [Suspect]
     Indication: DRUG USE FOR UNKNOWN INDICATION
     Route: 048
     Dates: start: 20080501
  2. MABTHERA [Suspect]
     Indication: NON-HODGKIN'S LYMPHOMA
     Dosage: 375MGM2 PER DAY
     Route: 042
     Dates: start: 20080303, end: 20080526
  3. PENTACARINAT [Suspect]
     Indication: DRUG USE FOR UNKNOWN INDICATION
     Dosage: 1UNIT MONTHLY
     Route: 045
     Dates: start: 20080601, end: 20080701

REACTIONS (4)
  - APHTHOUS STOMATITIS [None]
  - EATING DISORDER [None]
  - MOUTH ULCERATION [None]
  - QUALITY OF LIFE DECREASED [None]
